FAERS Safety Report 7293841-7 (Version None)
Quarter: 2011Q1

REPORT INFORMATION
  Report Type: 
  Country: None (occurrence: None)
  Receive Date: 20110215
  Receipt Date: 20110208
  Transmission Date: 20110831
  Serious: Yes (Hospitalization, Other)
  Sender: FDA-Public Use
  Company Number: CO-PFIZER INC-2010096847

PATIENT
  Age: 74 Year
  Sex: Male

DRUGS (5)
  1. LYRICA [Suspect]
     Indication: DIABETIC NEUROPATHY
     Dosage: 75 MG, 1X/DAY
     Route: 048
     Dates: start: 20060501
  2. CALCIUM CARBONATE [Concomitant]
  3. INSULIN [Concomitant]
     Dosage: 10 IU, 1X/DAY
  4. FUROSEMIDE [Concomitant]
     Dosage: UNK
  5. VITAMIN B COMPLEX CAP [Concomitant]
     Dosage: UNK

REACTIONS (16)
  - SKIN GRAFT [None]
  - ANAEMIA [None]
  - HYPOALBUMINAEMIA [None]
  - DIABETIC COMA [None]
  - CATHETER SITE INFECTION [None]
  - PROSTATE CANCER [None]
  - HAEMATURIA [None]
  - HYPOCALCAEMIA [None]
  - PNEUMONIA [None]
  - RENAL FAILURE CHRONIC [None]
  - GASTRIC ULCER [None]
  - HYPERPHOSPHATAEMIA [None]
  - THROMBOSIS [None]
  - LUNG DISORDER [None]
  - URINARY TRACT INFECTION [None]
  - PELVIC PAIN [None]
